FAERS Safety Report 25101826 (Version 3)
Quarter: 2025Q3

REPORT INFORMATION
  Report Type: Spontaneous
  Country: EU (occurrence: EU)
  Receive Date: 20250320
  Receipt Date: 20250809
  Transmission Date: 20251021
  Serious: Yes (Hospitalization)
  Sender: ALEXION PHARMACEUTICALS
  Company Number: None

PATIENT
  Age: 3 Day
  Sex: Female
  Weight: 3 kg

DRUGS (1)
  1. BEYFORTUS [Suspect]
     Active Substance: NIRSEVIMAB-ALIP
     Indication: Rotavirus immunisation
     Route: 065
     Dates: start: 20250112, end: 20250112

REACTIONS (4)
  - Cyanosis [Recovered/Resolved]
  - Apathy [Recovered/Resolved]
  - Hyporesponsive to stimuli [Recovered/Resolved]
  - Product use in unapproved indication [Unknown]

NARRATIVE: CASE EVENT DATE: 20250112
